FAERS Safety Report 4557198-4 (Version None)
Quarter: 2005Q1

REPORT INFORMATION
  Report Type: 
  Country: None (occurrence: None)
  Receive Date: 20050120
  Receipt Date: 20041105
  Transmission Date: 20050727
  Serious: Yes (Hospitalization)
  Sender: FDA-Public Use
  Company Number: US-BRISTOL-MYERS SQUIBB COMPANY-12757704

PATIENT
  Age: 52 Year
  Sex: Male
  Weight: 99 kg

DRUGS (23)
  1. ERBITUX [Suspect]
     Indication: RECTAL CANCER METASTATIC
     Dosage: RE-CHALLENGED 16-NOV-2004-400 MG/HR OR 100 CC/HR-TOTAL INFUSED 38 CC.
     Route: 042
     Dates: start: 20041105
  2. BENADRYL [Concomitant]
     Indication: PREMEDICATION
     Route: 042
     Dates: start: 20041105
  3. DIPHENHYDRAMINE HCL [Concomitant]
     Indication: PREMEDICATION
     Route: 048
     Dates: start: 20041105
  4. DEMEROL [Concomitant]
     Indication: PREMEDICATION
     Route: 042
     Dates: start: 20041105
  5. TYLENOL [Concomitant]
     Indication: PREMEDICATION
     Route: 048
     Dates: start: 20041105
  6. ASCORBIC ACID [Concomitant]
     Route: 048
  7. CIPRO [Concomitant]
     Route: 048
  8. COMPAZINE [Concomitant]
  9. DURAGESIC [Concomitant]
     Route: 061
  10. EPOGEN [Concomitant]
     Dosage: INJECTABLE. 40,000 UNITS.
     Route: 058
  11. LORAZEPAM [Concomitant]
     Indication: ANXIETY
     Route: 048
  12. METHENAMINE MANDELATE [Concomitant]
  13. METOCLOPRAMIDE [Concomitant]
     Dosage: WITH MEALS.
     Route: 048
  14. METOPROLOL [Concomitant]
     Route: 048
  15. OXYCODONE HCL [Concomitant]
     Indication: PAIN
     Dosage: 2-3 TABLETS EVERY 2 HOURS PRN PAIN.
  16. RANITIDINE [Concomitant]
     Route: 048
  17. SENNOSIDES [Concomitant]
  18. TERAZOSIN [Concomitant]
     Dosage: QHS.
     Route: 048
  19. TRAZODONE HCL [Concomitant]
     Dosage: AT BEDTIME FOR SLEEP.
     Route: 048
  20. VITAMIN D [Concomitant]
  21. ZOFRAN [Concomitant]
  22. ZOSYN [Concomitant]
     Indication: URINARY TRACT INFECTION
     Route: 042
  23. ECOTRIN [Concomitant]

REACTIONS (6)
  - CHEST PAIN [None]
  - CHILLS [None]
  - ELECTROCARDIOGRAM CHANGE [None]
  - ELECTROCARDIOGRAM ST SEGMENT ABNORMAL [None]
  - HYPERSENSITIVITY [None]
  - SEPSIS [None]
